FAERS Safety Report 15776231 (Version 1)
Quarter: 2018Q4

REPORT INFORMATION
  Report Type: Spontaneous
  Country: ES (occurrence: ES)
  Receive Date: 20181231
  Receipt Date: 20181231
  Transmission Date: 20190205
  Serious: Yes (Hospitalization, Other)
  Sender: FDA-Public Use
  Company Number: ES-LUPIN PHARMACEUTICALS INC.-2018-09033

PATIENT
  Age: 46 Year
  Sex: Male
  Weight: 85 kg

DRUGS (2)
  1. CEFTAZIDIME. [Suspect]
     Active Substance: CEFTAZIDIME
     Indication: MENINGITIS
     Dosage: 2 G, TID
     Route: 065
  2. VANCOMYCIN [Suspect]
     Active Substance: VANCOMYCIN
     Indication: MENINGITIS
     Dosage: 1 G, TID
     Route: 065

REACTIONS (2)
  - Renal tubular injury [Recovered/Resolved]
  - Tubulointerstitial nephritis [Recovered/Resolved]
